FAERS Safety Report 21762777 (Version 1)
Quarter: 2022Q4

REPORT INFORMATION
  Report Type: Spontaneous
  Country: ZA (occurrence: ZA)
  Receive Date: 20221221
  Receipt Date: 20221221
  Transmission Date: 20230112
  Serious: Yes (Hospitalization, Other)
  Sender: FDA-Public Use
  Company Number: ZA-AMERICAN REGENT INC-2022003616

PATIENT
  Sex: Male

DRUGS (1)
  1. FERINJECT [Suspect]
     Active Substance: FERRIC CARBOXYMALTOSE
     Indication: Product used for unknown indication
     Dosage: UNK
     Route: 042

REACTIONS (11)
  - Rheumatoid arthritis [Unknown]
  - Nephrolithiasis [Unknown]
  - Chronic kidney disease [Unknown]
  - Vascular dementia [Unknown]
  - Iron deficiency [Not Recovered/Not Resolved]
  - Cerebrovascular accident [Unknown]
  - Hemiparesis [Unknown]
  - Hypertension [Unknown]
  - Hiatus hernia [Unknown]
  - Gastritis [Unknown]
  - Lymphoedema [Unknown]

NARRATIVE: CASE EVENT DATE: 20210101
